FAERS Safety Report 11669004 (Version 1)
Quarter: 2015Q4

REPORT INFORMATION
  Report Type: Spontaneous
  Country: US (occurrence: US)
  Receive Date: 20151027
  Receipt Date: 20151027
  Transmission Date: 20160304
  Serious: No
  Sender: FDA-Public Use
  Company Number: US-ELI_LILLY_AND_COMPANY-US201001000002

PATIENT
  Age: 82 Year
  Sex: Female

DRUGS (1)
  1. FORTEO [Suspect]
     Active Substance: TERIPARATIDE
     Indication: BONE DISORDER
     Dosage: UNK, UNKNOWN

REACTIONS (8)
  - Arthralgia [Unknown]
  - Depression [Unknown]
  - Bursitis [Not Recovered/Not Resolved]
  - Cataract [Unknown]
  - Groin pain [Unknown]
  - Nausea [Unknown]
  - Blood calcium increased [Unknown]
  - Decreased appetite [Unknown]

NARRATIVE: CASE EVENT DATE: 20091125
